FAERS Safety Report 4541890-1 (Version None)
Quarter: 2004Q4

REPORT INFORMATION
  Report Type: 
  Country: None (occurrence: None)
  Receive Date: 20041230
  Receipt Date: 20041203
  Transmission Date: 20050328
  Serious: Yes (Hospitalization)
  Sender: FDA-Public Use
  Company Number: PHBS2004JP16395

PATIENT
  Age: 65 Year
  Sex: Male
  Weight: 65 kg

DRUGS (11)
  1. MELLERIL [Suspect]
     Indication: CEREBRAL INFARCTION
     Dosage: 90 MG/DAY
     Route: 048
     Dates: end: 20040804
  2. CILOSTAZOL [Suspect]
     Indication: CEREBRAL INFARCTION
     Dosage: UNK, UNK
     Route: 048
     Dates: end: 20040804
  3. BUP-4 [Suspect]
     Indication: CEREBRAL INFARCTION
     Dosage: UNK, UNK
     Route: 048
     Dates: start: 20040728, end: 20040804
  4. RADEN [Suspect]
     Dosage: 75 MG/D
     Route: 065
     Dates: end: 20040804
  5. MINIPRESS [Suspect]
     Indication: CEREBRAL INFARCTION
     Dosage: 4 MG/DAY
     Route: 048
     Dates: end: 20040728
  6. PHENOBAL [Suspect]
     Indication: CEREBRAL INFARCTION
     Dosage: 60 MG/DAY
     Route: 048
     Dates: end: 20040804
  7. GRAMALIL [Concomitant]
     Dosage: 50 MG/DAY
     Route: 048
     Dates: end: 20041007
  8. ASPIRIN [Concomitant]
     Dosage: UNK, UNK
     Route: 048
     Dates: end: 20041101
  9. ROHYPNOL [Concomitant]
     Dosage: 2 MG/DAY
     Route: 048
     Dates: start: 20040722, end: 20041101
  10. LANSOPRAZOLE [Concomitant]
     Dosage: 15 MG/DAY
     Route: 048
     Dates: start: 20040623, end: 20040804
  11. MAGNESIUM OXIDE [Concomitant]
     Dosage: 0.5 G/DAY
     Route: 048
     Dates: start: 20040617, end: 20040708

REACTIONS (6)
  - GRANULOCYTOPENIA [None]
  - NEUTROPHIL COUNT DECREASED [None]
  - NOCTURIA [None]
  - PYREXIA [None]
  - URINARY TRACT INFECTION [None]
  - WHITE BLOOD CELL COUNT DECREASED [None]
